FAERS Safety Report 5020735-X (Version None)
Quarter: 2006Q2

REPORT INFORMATION
  Report Type: 
  Country: None (occurrence: None)
  Receive Date: 20060601
  Receipt Date: 20060517
  Transmission Date: 20061013
  Serious: Yes (Hospitalization)
  Sender: FDA-Public Use
  Company Number: 14103

PATIENT
  Age: 71 Year
  Sex: Male

DRUGS (4)
  1. PACLITAXEL [Suspect]
  2. CARBOPLATIN [Suspect]
  3. DMXAA [Suspect]
     Indication: NON-SMALL CELL LUNG CANCER
     Dosage: 1800 MG IV
     Route: 042
     Dates: start: 20060302, end: 20060413
  4. AUGMENTIN /00756801/ [Concomitant]

REACTIONS (2)
  - FEBRILE NEUTROPENIA [None]
  - LOWER RESPIRATORY TRACT INFECTION [None]
